FAERS Safety Report 4407726-4 (Version None)
Quarter: 2004Q3

REPORT INFORMATION
  Report Type: 
  Country: None (occurrence: None)
  Receive Date: 20040726
  Receipt Date: 20040719
  Transmission Date: 20050211
  Serious: Yes (Hospitalization)
  Sender: FDA-Public Use
  Company Number: PHFR2004GB02906

PATIENT
  Age: 92 Year
  Sex: Female

DRUGS (2)
  1. VOLTAROL RAPID [Suspect]
     Dosage: 50 MG, QD
     Route: 048
  2. CO-AMILOZIDE [Concomitant]
     Dosage: 1 UKN, BID
     Route: 048

REACTIONS (1)
  - GASTROINTESTINAL HAEMORRHAGE [None]
